FAERS Safety Report 9578393 (Version 2)
Quarter: 2013Q4

REPORT INFORMATION
  Report Type: Spontaneous
  Country: US (occurrence: US)
  Receive Date: 20131001
  Receipt Date: 20131001
  Transmission Date: 20140711
  Serious: No
  Sender: FDA-Public Use
  Company Number: US-AMGEN-USASP2013011059

PATIENT
  Age: 43 Year
  Sex: Male

DRUGS (8)
  1. ENBREL [Suspect]
     Indication: PSORIATIC ARTHROPATHY
     Dosage: 50 MG, QWK
     Dates: start: 20120825, end: 20130203
  2. ENBREL [Suspect]
     Indication: PSORIASIS
  3. LYRICA [Concomitant]
     Dosage: 75 MG, UNK
  4. CELEXA                             /00582602/ [Concomitant]
     Dosage: 20 MG, UNK
  5. NUCYNTA [Concomitant]
     Dosage: 50 MG, UNK
  6. XANAX [Concomitant]
     Dosage: 0.5 MG, UNK
  7. XANAX [Concomitant]
     Dosage: 1 MG, UNK
  8. LISINOPRIL [Concomitant]
     Dosage: 2.5 MG, UNK

REACTIONS (2)
  - Drug effect incomplete [Unknown]
  - Arthralgia [Not Recovered/Not Resolved]
